FAERS Safety Report 16772423 (Version 1)
Quarter: 2019Q3

REPORT INFORMATION
  Report Type: Spontaneous
  Country: US (occurrence: US)
  Receive Date: 20190904
  Receipt Date: 20190904
  Transmission Date: 20191005
  Serious: No
  Sender: FDA-Public Use
  Company Number: US-PTC THERAPEUTICS, INC.-US-2019PTC000918

PATIENT
  Sex: Female
  Weight: 49.89 kg

DRUGS (4)
  1. LISINOPRIL. [Concomitant]
     Active Substance: LISINOPRIL
     Indication: PRODUCT USED FOR UNKNOWN INDICATION
  2. EMFLAZA [Suspect]
     Active Substance: DEFLAZACORT
     Indication: DUCHENNE MUSCULAR DYSTROPHY
     Dosage: 6 MG, BID
     Route: 065
     Dates: end: 2019
  3. EMFLAZA [Suspect]
     Active Substance: DEFLAZACORT
     Indication: TURNER^S SYNDROME
     Dosage: 18 MG, BID
     Route: 048
  4. LEVORA [Concomitant]
     Active Substance: ETHINYL ESTRADIOL\LEVONORGESTREL
     Indication: PRODUCT USED FOR UNKNOWN INDICATION
     Dosage: UNK

REACTIONS (4)
  - Muscle disorder [Not Recovered/Not Resolved]
  - Substance-induced psychotic disorder [Unknown]
  - Psoriasis [Not Recovered/Not Resolved]
  - Rosacea [Not Recovered/Not Resolved]
